FAERS Safety Report 13499559 (Version 1)
Quarter: 2017Q2

REPORT INFORMATION
  Report Type: Spontaneous
  Country: FR (occurrence: FR)
  Receive Date: 20170501
  Receipt Date: 20170501
  Transmission Date: 20170830
  Serious: Yes (Hospitalization)
  Sender: FDA-Public Use
  Company Number: FR-EMD SERONO-8155346

PATIENT
  Age: 48 Year
  Sex: Female

DRUGS (2)
  1. DOLIPRANE [Concomitant]
     Active Substance: ACETAMINOPHEN
     Indication: PREMEDICATION
     Dosage: 500 UNSPECIFIED UNIT
  2. REBIF [Suspect]
     Active Substance: INTERFERON BETA-1A
     Indication: MULTIPLE SCLEROSIS
     Dates: start: 200509

REACTIONS (5)
  - Speech disorder [Unknown]
  - Renal disorder [Unknown]
  - Injection site mass [Unknown]
  - Cardiac disorder [Unknown]
  - Fatigue [Unknown]
